FAERS Safety Report 6664466-9 (Version None)
Quarter: 2010Q2

REPORT INFORMATION
  Report Type: 
  Country: None (occurrence: None)
  Receive Date: 20100401
  Receipt Date: 20100324
  Transmission Date: 20101027
  Serious: Yes (Other)
  Sender: FDA-Public Use
  Company Number: JP-ELI_LILLY_AND_COMPANY-JP201003007451

PATIENT
  Age: 66 Year
  Sex: Male

DRUGS (3)
  1. GEMZAR [Suspect]
     Indication: BILE DUCT CANCER
     Dosage: 1400 MG, OTHER
     Route: 042
     Dates: start: 20050101
  2. GEMZAR [Suspect]
     Dosage: 1000 MG, OTHER
     Route: 042
     Dates: start: 20060401
  3. IRINOTECAN HCL [Concomitant]
     Indication: BILE DUCT CANCER
     Dosage: 60 MG, OTHER
     Route: 042
     Dates: start: 20060401

REACTIONS (7)
  - ASCITES [None]
  - BILE DUCT CANCER [None]
  - HAEMATOMA [None]
  - LARGE INTESTINE PERFORATION [None]
  - MALIGNANT NEOPLASM PROGRESSION [None]
  - PERITONITIS [None]
  - WHITE BLOOD CELL COUNT DECREASED [None]
